FAERS Safety Report 14406737 (Version 1)
Quarter: 2018Q1

REPORT INFORMATION
  Report Type: Spontaneous
  Country: NL (occurrence: NL)
  Receive Date: 20180118
  Receipt Date: 20180118
  Transmission Date: 20180509
  Serious: Yes (Other)
  Sender: FDA-Public Use
  Company Number: NL-AKRON, INC.-2040294

PATIENT
  Age: 86 Year
  Sex: Female

DRUGS (1)
  1. ZIOPTAN [Suspect]
     Active Substance: TAFLUPROST
     Indication: GLAUCOMA
     Route: 047

REACTIONS (2)
  - Visual impairment [Unknown]
  - Posterior capsule rupture [Not Recovered/Not Resolved]

NARRATIVE: CASE EVENT DATE: 20171114
